FAERS Safety Report 8990018 (Version 2)
Quarter: 2013Q2

REPORT INFORMATION
  Report Type: Spontaneous
  Country: FR (occurrence: FR)
  Receive Date: 20121228
  Receipt Date: 20130409
  Transmission Date: 20140414
  Serious: Yes (Hospitalization)
  Sender: FDA-Public Use
  Company Number: FR-SANOFI-AVENTIS-2012SA093926

PATIENT
  Age: 76 Year
  Sex: Female
  Weight: 64.3 kg

DRUGS (9)
  1. LOVENOX [Suspect]
     Indication: PRODUCT USED FOR UNKNOWN INDICATION
     Route: 058
     Dates: start: 20121116, end: 20121119
  2. ARIXTRA [Suspect]
     Indication: DEEP VEIN THROMBOSIS
     Route: 058
     Dates: start: 20121109, end: 20121114
  3. ANTIBIOTICS [Concomitant]
     Indication: ERYSIPELAS
     Dates: start: 201211
  4. TEGRETOL [Concomitant]
  5. TANGANIL [Concomitant]
     Dosage: STRENGTH: 500 MG
  6. HYTACAND [Concomitant]
     Dosage: STRENGTH: 8 MG/ 12.5 MG
  7. GINKOR FORT [Concomitant]
  8. TANAKAN [Concomitant]
     Dosage: STRENGTH: 40 MG
  9. DAFALGAN CODEINE [Concomitant]

REACTIONS (4)
  - Renal failure acute [Recovered/Resolved]
  - Haematoma [Unknown]
  - Haemorrhagic anaemia [Recovering/Resolving]
  - Gastric ulcer haemorrhage [Recovering/Resolving]
